FAERS Safety Report 11270972 (Version 1)
Quarter: 2015Q3

REPORT INFORMATION
  Report Type: Spontaneous
  Country: US (occurrence: US)
  Receive Date: 20150714
  Receipt Date: 20150714
  Transmission Date: 20151125
  Serious: No
  Sender: FDA-Public Use
  Company Number: US-BAUSCH-BL-2015-011924

PATIENT
  Age: 32 Year
  Sex: Female
  Weight: 54.48 kg

DRUGS (1)
  1. LOTEMAX [Suspect]
     Active Substance: LOTEPREDNOL ETABONATE
     Indication: DRY EYE
     Dosage: INSTILL ONE DROP THREE TIMES DAILY TO EACH EYE.
     Route: 047
     Dates: start: 20150406, end: 201504

REACTIONS (4)
  - Dacryostenosis acquired [Not Recovered/Not Resolved]
  - Headache [Recovered/Resolved]
  - Dry eye [Recovered/Resolved]
  - Eye discharge [Not Recovered/Not Resolved]

NARRATIVE: CASE EVENT DATE: 201504
